FAERS Safety Report 4456019-8 (Version None)
Quarter: 2004Q3

REPORT INFORMATION
  Report Type: 
  Country: None (occurrence: None)
  Receive Date: 20040920
  Receipt Date: 20040909
  Transmission Date: 20050211
  Serious: Yes (Hospitalization)
  Sender: FDA-Public Use
  Company Number: EM2004-0467

PATIENT
  Age: 40 Year
  Sex: Male
  Weight: 52 kg

DRUGS (1)
  1. MACROLIN [Suspect]
     Indication: HIV INFECTION
     Dosage: 4.5 MIU, BID
     Dates: start: 20040805, end: 20040810

REACTIONS (4)
  - DIARRHOEA [None]
  - GASTROENTERITIS CRYPTOSPORIDIAL [None]
  - IMMUNOSUPPRESSION [None]
  - WEIGHT DECREASED [None]
